FAERS Safety Report 5346657-2 (Version None)
Quarter: 2007Q2

REPORT INFORMATION
  Report Type: 
  Country: None (occurrence: None)
  Receive Date: 20070604
  Receipt Date: 20070524
  Transmission Date: 20071010
  Serious: Yes (Other)
  Sender: FDA-Public Use
  Company Number: GXKR2007CH04616

PATIENT
  Age: 4 Month
  Sex: Female

DRUGS (2)
  1. OMEPRAZOLE [Suspect]
     Indication: GASTROOESOPHAGEAL REFLUX DISEASE
     Dosage: 0.8 MG/KG DAILY
  2. ESOMEPRAZOLE (ESOMEPRAZOLE) [Suspect]
     Indication: GASTROOESOPHAGEAL REFLUX DISEASE
     Dosage: 0.8 MG/KG DAILY

REACTIONS (5)
  - FACE OEDEMA [None]
  - LUNG DISORDER [None]
  - RESPIRATORY DISTRESS [None]
  - TACHYPNOEA [None]
  - WHEEZING [None]
